FAERS Safety Report 21372663 (Version 1)
Quarter: 2022Q3

REPORT INFORMATION
  Report Type: Spontaneous
  Country: DE (occurrence: DE)
  Receive Date: 20220924
  Receipt Date: 20220924
  Transmission Date: 20221027
  Serious: Yes (Hospitalization, Other)
  Sender: FDA-Public Use
  Company Number: None

PATIENT
  Age: 67 Year
  Sex: Female
  Weight: 80 kg

DRUGS (40)
  1. RANITIDINE HYDROCHLORIDE [Suspect]
     Active Substance: RANITIDINE HYDROCHLORIDE
     Indication: Skin ulcer
     Dosage: UNK
     Route: 042
     Dates: start: 20010910, end: 20010910
  2. PROPAFENONE [Suspect]
     Active Substance: PROPAFENONE
     Indication: Arrhythmia
     Dosage: UNK
     Route: 048
     Dates: end: 20010903
  3. PROPAFENONE [Suspect]
     Active Substance: PROPAFENONE
     Dosage: UNK
     Route: 048
     Dates: start: 20010904, end: 20010904
  4. PIRACETAM [Suspect]
     Active Substance: PIRACETAM
     Indication: Intellectual disability
     Dosage: UNK
     Route: 048
     Dates: end: 20010903
  5. PIRACETAM [Suspect]
     Active Substance: PIRACETAM
     Dosage: UNK
     Route: 048
     Dates: start: 20010904, end: 20010909
  6. REMIFENTANIL [Suspect]
     Active Substance: REMIFENTANIL
     Indication: Stupor
     Dosage: UNK
     Route: 042
     Dates: start: 20010904, end: 20010904
  7. MIDAZOLAM [Suspect]
     Active Substance: MIDAZOLAM
     Indication: Stupor
     Dosage: UNK
     Route: 042
     Dates: start: 20010910, end: 20010910
  8. PROPOFOL [Suspect]
     Active Substance: PROPOFOL
     Indication: Stupor
     Dosage: UNK
     Route: 042
     Dates: start: 20010910, end: 20010910
  9. FENTANYL [Suspect]
     Active Substance: FENTANYL
     Indication: Stupor
     Dosage: UNK
     Route: 042
     Dates: start: 20010910, end: 20010910
  10. CARBIDOPA\LEVODOPA [Suspect]
     Active Substance: CARBIDOPA\LEVODOPA
     Indication: Parkinson^s disease
     Dosage: UNK
     Route: 048
     Dates: end: 20010903
  11. CARBIDOPA\LEVODOPA [Suspect]
     Active Substance: CARBIDOPA\LEVODOPA
     Dosage: UNK
     Route: 048
     Dates: start: 20010904, end: 20010909
  12. DIMETHINDENE [Suspect]
     Active Substance: DIMETHINDENE
     Indication: Premedication
     Dosage: UNK
     Route: 042
     Dates: start: 20010910, end: 20010910
  13. METAMIZOLE [Suspect]
     Active Substance: METAMIZOLE
     Indication: Pain
     Dosage: UNK
     Route: 042
     Dates: start: 20010904, end: 20010904
  14. THIOPENTAL [Suspect]
     Active Substance: THIOPENTAL
     Indication: Anaesthesia
     Dosage: UNK
     Route: 042
     Dates: start: 20010904, end: 20010904
  15. THIOPENTAL [Suspect]
     Active Substance: THIOPENTAL
     Indication: Stupor
  16. TROPISETRON HYDROCHLORIDE [Suspect]
     Active Substance: TROPISETRON HYDROCHLORIDE
     Indication: Prophylaxis of nausea and vomiting
     Dosage: UNK
     Route: 042
     Dates: start: 20010910, end: 20010910
  17. TROPISETRON HYDROCHLORIDE [Suspect]
     Active Substance: TROPISETRON HYDROCHLORIDE
     Indication: Nausea
  18. AMEZINIUM METILSULFATE [Suspect]
     Active Substance: AMEZINIUM METILSULFATE
     Indication: Hypotension
     Dosage: UNK
     Route: 042
     Dates: start: 20010910, end: 20010910
  19. CERTOPARIN SODIUM [Suspect]
     Active Substance: CERTOPARIN SODIUM
     Indication: Thrombosis prophylaxis
     Dosage: UNK
     Route: 058
     Dates: start: 20010910, end: 20010910
  20. NAROPIN [Suspect]
     Active Substance: ROPIVACAINE HYDROCHLORIDE
     Indication: Stupor
     Dosage: UNK
     Route: 042
     Dates: start: 20010910, end: 20010910
  21. SUFENTA [Suspect]
     Active Substance: SUFENTANIL CITRATE
     Indication: Stupor
     Dosage: UNK
     Route: 042
     Dates: start: 20010910, end: 20010910
  22. PROPAFENONE [Suspect]
     Active Substance: PROPAFENONE
     Indication: Arrhythmia
     Dosage: 300 MG, QD
     Route: 048
     Dates: start: 20010910
  23. PIRACETAM [Suspect]
     Active Substance: PIRACETAM
     Indication: Intellectual disability
     Dosage: UNK
     Route: 048
     Dates: start: 20010910
  24. CARBIDOPA\LEVODOPA [Suspect]
     Active Substance: CARBIDOPA\LEVODOPA
     Indication: Parkinson^s disease
     Dosage: UNK
     Route: 048
     Dates: start: 20010910
  25. CEFOTIAM HYDROCHLORIDE [Suspect]
     Active Substance: CEFOTIAM HYDROCHLORIDE
     Indication: Product used for unknown indication
     Dosage: UNK
     Route: 042
     Dates: start: 20010911
  26. MINERALS\PROBIOTICS NOS\VITAMINS [Suspect]
     Active Substance: MINERALS\PROBIOTICS NOS\VITAMINS
     Indication: Hypovitaminosis
     Dosage: UNK
     Route: 042
     Dates: start: 20010911
  27. ATROPINE [Suspect]
     Active Substance: ATROPINE
     Indication: Surgery
     Dosage: UNK
     Route: 042
     Dates: start: 20010904, end: 20010904
  28. ATROPINE [Suspect]
     Active Substance: ATROPINE
     Dosage: UNK
     Route: 042
     Dates: start: 20010910, end: 20010910
  29. DEXPANTHENOL [Suspect]
     Active Substance: DEXPANTHENOL
     Indication: Product used for unknown indication
     Dosage: UNK
     Route: 042
     Dates: start: 20010911
  30. CISATRACURIUM BESYLATE [Suspect]
     Active Substance: CISATRACURIUM BESYLATE
     Indication: Stupor
     Dosage: UNK
     Route: 042
     Dates: start: 20010910, end: 20010910
  31. DIGITOXIN [Suspect]
     Active Substance: DIGITOXIN
     Indication: Cardiac failure
     Dosage: UNK
     Route: 048
     Dates: end: 20010903
  32. DIGITOXIN [Suspect]
     Active Substance: DIGITOXIN
     Dosage: UNK
     Route: 048
     Dates: start: 20010904
  33. KETAMINE [Suspect]
     Active Substance: KETAMINE
     Indication: Stupor
     Dosage: UNK
     Route: 042
     Dates: start: 20010910, end: 20010910
  34. NEOSTIGMINE [Suspect]
     Active Substance: NEOSTIGMINE
     Indication: Product used for unknown indication
     Dosage: UNK
     Route: 042
     Dates: start: 20010911
  35. CALCIUM BETA [Concomitant]
     Indication: Blood calcium decreased
     Dosage: UNK
     Route: 048
  36. GELAFUNDIN [Concomitant]
     Indication: Product used for unknown indication
     Dosage: UNK
     Route: 042
     Dates: start: 20010910, end: 20010910
  37. JONOSTERIL [Concomitant]
     Indication: Product used for unknown indication
     Dosage: UNK
     Route: 042
     Dates: start: 20010910
  38. DIGOXIN [Concomitant]
     Active Substance: DIGOXIN
     Indication: Cardiac failure
     Dosage: UNK
     Route: 048
  39. RINGERS SOLUTION [Concomitant]
     Active Substance: CALCIUM CHLORIDE\POTASSIUM CHLORIDE\SODIUM CHLORIDE
     Indication: Product used for unknown indication
     Dosage: UNK
     Route: 042
     Dates: start: 20010904, end: 20010904
  40. RINGERS SOLUTION [Concomitant]
     Active Substance: CALCIUM CHLORIDE\POTASSIUM CHLORIDE\SODIUM CHLORIDE
     Dosage: UNK
     Route: 042
     Dates: start: 20010910, end: 20010910

REACTIONS (7)
  - Stevens-Johnson syndrome [Recovering/Resolving]
  - Blister [Recovering/Resolving]
  - Petechiae [Recovering/Resolving]
  - Rash macular [Recovering/Resolving]
  - Toxic epidermal necrolysis [Not Recovered/Not Resolved]
  - Pyrexia [Recovered/Resolved]
  - Erythema [Recovering/Resolving]

NARRATIVE: CASE EVENT DATE: 20010912
